FAERS Safety Report 6517960-5 (Version None)
Quarter: 2009Q4

REPORT INFORMATION
  Report Type: 
  Country: None (occurrence: None)
  Receive Date: 20091218
  Receipt Date: 20091210
  Transmission Date: 20100525
  Serious: Yes (Other)
  Sender: FDA-Public Use
  Company Number: 2009JP007258

PATIENT
  Age: 57 Year
  Sex: Male
  Weight: 67 kg

DRUGS (12)
  1. FUNGUARD (MICAFUNGIN) INJECTION [Suspect]
     Indication: SYSTEMIC MYCOSIS
     Dosage: 150 MG, UID/QD, IV DRIP ; 150 MG, UID/QD, IV DRIP
     Route: 041
     Dates: start: 20091027, end: 20091028
  2. FUNGUARD (MICAFUNGIN) INJECTION [Suspect]
     Indication: SYSTEMIC MYCOSIS
     Dosage: 150 MG, UID/QD, IV DRIP ; 150 MG, UID/QD, IV DRIP
     Route: 041
     Dates: start: 20091111, end: 20091111
  3. HYDREA [Concomitant]
  4. MABLIN (BUSULFAN) [Concomitant]
  5. SOLU MEDROL (METHYLPREDNISOLOE SODIUM SUCCINATE) [Concomitant]
  6. DORIBAX [Concomitant]
  7. MAXIPIME [Concomitant]
  8. FAMOTIDINE [Concomitant]
  9. LOXONIN (LOXOPROFEN SODIUM) [Concomitant]
  10. MIYA BM (CLOSTRIDIUM BUTYRICUM) [Concomitant]
  11. FRAGMIN [Concomitant]
  12. AMINO ACIDS NOS W/CARBOHYD. NOS/ELECTROL. NOS (AMINO ACIDS NOS, CARBOH [Concomitant]

REACTIONS (11)
  - ABDOMINAL PAIN [None]
  - BLOOD CREATINE PHOSPHOKINASE INCREASED [None]
  - CHEST DISCOMFORT [None]
  - CHOKING [None]
  - DISSEMINATED INTRAVASCULAR COAGULATION [None]
  - HAEMOLYTIC ANAEMIA [None]
  - HEPATIC FUNCTION ABNORMAL [None]
  - HYPERHIDROSIS [None]
  - NAUSEA [None]
  - OROPHARYNGEAL DISCOMFORT [None]
  - PERIPHERAL COLDNESS [None]
